FAERS Safety Report 6041834-X (Version None)
Quarter: 2009Q1

REPORT INFORMATION
  Report Type: 
  Country: None (occurrence: None)
  Receive Date: 20090116
  Receipt Date: 20081223
  Transmission Date: 20090719
  Serious: Yes (Disabling)
  Sender: FDA-Public Use
  Company Number: CH-PFIZER INC-2008160089

PATIENT

DRUGS (12)
  1. NEURONTIN [Suspect]
     Indication: ANXIETY DISORDER
     Route: 048
     Dates: start: 20080818
  2. RISPERDAL [Suspect]
     Indication: HALLUCINATION, VISUAL
     Route: 048
     Dates: start: 20080407, end: 20080726
  3. BRUFEN [Concomitant]
     Dosage: 400 MG, 3X/DAY
     Route: 048
     Dates: start: 20080713, end: 20080726
  4. ASPIRIN [Concomitant]
     Dosage: 100 MG, 1X/DAY
     Dates: start: 20070724, end: 20080726
  5. STILNOX [Concomitant]
     Dosage: 10 MG, UNK
     Dates: start: 20080207, end: 20080731
  6. ECOFENAC [Concomitant]
     Dosage: 10 MG, 2X/DAY
     Dates: start: 20080508
  7. AUGMENTIN '125' [Concomitant]
     Dosage: 1 G, 1X/DAY
     Dates: start: 20080722, end: 20080731
  8. MADOPAR [Concomitant]
     Dosage: 62.5 MG, 3X/DAY
     Dates: start: 20080731
  9. SEROQUEL [Concomitant]
     Dosage: 6.25 MG, 1X/DAY
     Dates: start: 20080731
  10. ALL OTHER THERAPEUTIC PRODUCTS [Concomitant]
     Dosage: UNK
     Dates: start: 20080801
  11. ZOLOFT [Concomitant]
     Dosage: UNK
     Dates: start: 20080801
  12. PREDNISONE [Concomitant]

REACTIONS (3)
  - BRADYKINESIA [None]
  - EXTRAPYRAMIDAL DISORDER [None]
  - OFF LABEL USE [None]
